FAERS Safety Report 7901982-3 (Version None)
Quarter: 2011Q4

REPORT INFORMATION
  Report Type: 
  Country: None (occurrence: None)
  Receive Date: 20111108
  Receipt Date: 20111031
  Transmission Date: 20120403
  Serious: Yes (Hospitalization, Disabling, Other)
  Sender: FDA-Public Use
  Company Number: US-GLAXOSMITHKLINE-A0865927A

PATIENT
  Age: 67 Year
  Sex: Female

DRUGS (13)
  1. PROMACTA [Suspect]
     Indication: AUTOIMMUNE THROMBOCYTOPENIA
     Dosage: 50MG PER DAY
     Route: 048
     Dates: start: 20091201, end: 20110907
  2. METOLAZONE [Concomitant]
  3. LIPITOR [Concomitant]
     Dosage: 80MG PER DAY
  4. FOLIC ACID [Concomitant]
  5. PREVACID [Concomitant]
     Dosage: 30MG PER DAY
  6. LASIX [Concomitant]
     Dosage: 40MG TWICE PER DAY
  7. VITAMIN D [Concomitant]
     Dosage: 200MG PER DAY
  8. LANTUS [Concomitant]
     Dosage: 18MG IN THE MORNING
  9. CARVEDILOL [Concomitant]
     Dosage: 25MG TWICE PER DAY
  10. BENICAR [Concomitant]
     Dosage: 40MG PER DAY
  11. HYDRALAZINE HCL [Concomitant]
     Dosage: 25MG TWICE PER DAY
  12. VITAMIN D [Concomitant]
     Dosage: 5000UNIT MONTHLY
  13. NOVOLOG [Concomitant]

REACTIONS (5)
  - ASTHENIA [None]
  - DIZZINESS [None]
  - HAEMATOMA [None]
  - LEUKOCYTOSIS [None]
  - DEEP VEIN THROMBOSIS [None]
